FAERS Safety Report 13289438 (Version 1)
Quarter: 2017Q1

REPORT INFORMATION
  Report Type: Spontaneous
  Country: US (occurrence: US)
  Receive Date: 20170302
  Receipt Date: 20170302
  Transmission Date: 20170428
  Serious: No
  Sender: FDA-Public Use
  Company Number: US-JNJFOC-20161215226

PATIENT
  Age: 75 Year
  Sex: Female
  Weight: 73.48 kg

DRUGS (2)
  1. IMODIUM MULTI-SYMPTOM RELIEF [Suspect]
     Active Substance: DIMETHICONE\LOPERAMIDE HYDROCHLORIDE
     Indication: PROPHYLAXIS
     Dosage: 1 OR 2 CAPLETS; A FEW TIMES A DAY. USING FROM PAST 3 YEARS
     Route: 048
  2. IMODIUM MULTI-SYMPTOM RELIEF [Suspect]
     Active Substance: DIMETHICONE\LOPERAMIDE HYDROCHLORIDE
     Indication: DIARRHOEA
     Dosage: 1 OR 2 CAPLETS; A FEW TIMES A DAY. USING FROM PAST 3 YEARS
     Route: 048

REACTIONS (2)
  - Incorrect dose administered [Unknown]
  - Drug effect decreased [Unknown]
